FAERS Safety Report 24603531 (Version 1)
Quarter: 2024Q4

REPORT INFORMATION
  Report Type: Spontaneous
  Country: SE (occurrence: SE)
  Receive Date: 20241111
  Receipt Date: 20241111
  Transmission Date: 20250115
  Serious: Yes (Life-Threatening, Other)
  Sender: FRESENIUS KABI
  Company Number: None

PATIENT
  Age: 41 Year
  Sex: Male
  Weight: 98 kg

DRUGS (10)
  1. ROCURONIUM BROMIDE [Suspect]
     Active Substance: ROCURONIUM BROMIDE
     Indication: General anaesthesia
     Dosage: FORM OF ADMIN: SOLUTION FOR INJECTION/INFUSION
     Route: 042
     Dates: start: 20241015, end: 20241015
  2. PROPOFOL [Suspect]
     Active Substance: PROPOFOL
     Indication: General anaesthesia
     Dosage: FOA: EMULSION FOR INJECTION/INFUSION
     Route: 042
     Dates: start: 20241015, end: 20241015
  3. SEVOFLURANE [Suspect]
     Active Substance: SEVOFLURANE
     Indication: General anaesthesia
     Dosage: FOA: INHALATION VAPOUR, LIQUID ?ROA: INHALATION USE
     Dates: start: 20241015, end: 20241015
  4. Noradrenaline Pfizer [noradrenaline tartrate (monohydrate), noradrenal [Concomitant]
     Indication: Product used for unknown indication
     Dosage: FOA: CONCENTRATE FOR SOLUTION FOR INFUSION
     Route: 042
     Dates: start: 20241015
  5. Brevibloc [esmolol hydrochloride, esmolol] [Concomitant]
     Indication: Product used for unknown indication
     Dosage: FOA: SOLUTION FOR INJECTION
     Route: 042
     Dates: start: 20241015, end: 20241015
  6. Alburex [albumin, human] [Concomitant]
     Indication: Product used for unknown indication
     Dosage: FOA: SOLUTION FOR INFUSION
     Route: 042
     Dates: start: 20241015, end: 20241015
  7. NovoRapid [insulin, aspart (soluble)] [Concomitant]
     Indication: Product used for unknown indication
     Dosage: FOA: SOLUTION FOR INJECTION
     Route: 042
     Dates: start: 20241015
  8. Esketamine Orifarm [esketamine hydrochloride, esketamine] [Concomitant]
     Indication: Product used for unknown indication
     Dosage: FOA: SOLUTION FOR INJECTION/INFUSION
     Route: 042
     Dates: start: 20241015, end: 20241015
  9. Albumin Baxalta [albumin, human] [Concomitant]
     Indication: Product used for unknown indication
     Dosage: FOA: SOLUTION FOR INFUSION
     Route: 042
     Dates: start: 20241015
  10. Adenosine Life Medical [adenosine] [Concomitant]
     Indication: Product used for unknown indication
     Dosage: FOA: SOLUTION FOR INJECTION/INFUSION
     Route: 042
     Dates: start: 20241015, end: 20241015

REACTIONS (2)
  - Carbon dioxide increased [Recovered/Resolved]
  - Hyperthermia malignant [Recovered/Resolved]

NARRATIVE: CASE EVENT DATE: 20241015
